FAERS Safety Report 22090238 (Version 1)
Quarter: 2023Q1

REPORT INFORMATION
  Report Type: Spontaneous
  Country: GB (occurrence: GB)
  Receive Date: 20230313
  Receipt Date: 20230313
  Transmission Date: 20230417
  Serious: Yes (Life-Threatening, Other)
  Sender: FDA-Public Use
  Company Number: GB-MHRA-MED-202303112144106580-VWBZJ

PATIENT
  Age: 55 Year
  Sex: Male
  Weight: 95 kg

DRUGS (1)
  1. AMLODIPINE [Suspect]
     Active Substance: AMLODIPINE BESYLATE
     Indication: Adverse drug reaction
     Dosage: 5 MG, QD
     Route: 065
     Dates: start: 20210310, end: 20210311

REACTIONS (1)
  - Heart rate [Recovering/Resolving]

NARRATIVE: CASE EVENT DATE: 20210310
